FAERS Safety Report 4579871-4 (Version None)
Quarter: 2005Q1

REPORT INFORMATION
  Report Type: 
  Country: None (occurrence: None)
  Receive Date: 20050210
  Receipt Date: 20050126
  Transmission Date: 20050727
  Serious: Yes (Death, Hospitalization)
  Sender: FDA-Public Use
  Company Number: 2004AL000701

PATIENT
  Age: 46 Year
  Sex: Female

DRUGS (7)
  1. TRAZODONE HCL [Suspect]
     Dosage: PO
     Route: 048
  2. ALPRAZOLAM [Suspect]
     Dosage: PO
     Route: 048
  3. OXYCODONE HCL [Suspect]
     Dosage: PO
     Route: 048
  4. OLANZAPINE [Suspect]
     Dosage: PO
     Route: 048
  5. CYCLOBENZAPRINE HCL [Suspect]
     Dosage: PO
     Route: 048
  6. GABAPENTIN [Suspect]
     Dosage: PO
     Route: 048
  7. CELECOXIB [Suspect]
     Dosage: PO
     Route: 048

REACTIONS (13)
  - AREFLEXIA [None]
  - BLOOD PRESSURE DIASTOLIC DECREASED [None]
  - BLOOD PRESSURE SYSTOLIC INCREASED [None]
  - BRAIN OEDEMA [None]
  - COMA [None]
  - COMPLETED SUICIDE [None]
  - GENERAL PHYSICAL HEALTH DETERIORATION [None]
  - HEART RATE IRREGULAR [None]
  - HYPOTENSION [None]
  - HYPOXIA [None]
  - INTENTIONAL MISUSE [None]
  - PUPIL FIXED [None]
  - TACHYCARDIA [None]
